FAERS Safety Report 21191280 (Version 1)
Quarter: 2022Q3

REPORT INFORMATION
  Report Type: Spontaneous
  Country: US (occurrence: US)
  Receive Date: 20220809
  Receipt Date: 20220809
  Transmission Date: 20221027
  Serious: No
  Sender: FDA-Public Use
  Company Number: US-BRISTOL-MYERS SQUIBB COMPANY-2022-086923

PATIENT
  Age: 78 Year
  Sex: Female

DRUGS (1)
  1. REVLIMID [Suspect]
     Active Substance: LENALIDOMIDE
     Indication: Product used for unknown indication
     Dosage: DOSE:  15 MG  FOR 21 DAYS ON 7?FREQ:  DAILY
     Route: 048
     Dates: start: 202207

REACTIONS (2)
  - Fatigue [Unknown]
  - Rash [Unknown]

NARRATIVE: CASE EVENT DATE: 20220808
